FAERS Safety Report 9950937 (Version 2)
Quarter: 2014Q1

REPORT INFORMATION
  Report Type: Report from Study
  Country: US (occurrence: US)
  Receive Date: 20140304
  Receipt Date: 20140304
  Transmission Date: 20141002
  Serious: No
  Sender: FDA-Public Use
  Company Number: US-ABBVIE-12P-163-0996416-00

PATIENT
  Age: 66 Year
  Sex: Female

DRUGS (6)
  1. HUMIRA [Suspect]
     Indication: CROHN^S DISEASE
     Route: 058
     Dates: start: 20121010, end: 20121010
  2. HUMIRA [Suspect]
     Route: 058
  3. ENTOCORT [Concomitant]
     Indication: PRODUCT USED FOR UNKNOWN INDICATION
     Dosage: DAILY
     Dates: end: 20121221
  4. VERAPAMIL [Concomitant]
     Indication: HYPERTENSION
     Dosage: DAILY
  5. BENAZEPRIL [Concomitant]
     Indication: HYPERTENSION
     Dosage: DAILY
  6. BENAZEPRIL [Concomitant]
     Dates: start: 201301

REACTIONS (6)
  - Skin papilloma [Unknown]
  - Injection site pain [Recovered/Resolved]
  - Diarrhoea [Not Recovered/Not Resolved]
  - Blood pressure increased [Unknown]
  - Injection site pain [Unknown]
  - Diarrhoea [Unknown]
